FAERS Safety Report 5109013-8 (Version None)
Quarter: 2006Q3

REPORT INFORMATION
  Report Type: 
  Country: None (occurrence: None)
  Receive Date: 20060918
  Receipt Date: 20060830
  Transmission Date: 20061208
  Serious: Yes (Hospitalization)
  Sender: FDA-Public Use
  Company Number: US200607003033

PATIENT
  Age: 75 Year
  Sex: Female

DRUGS (2)
  1. FORTEO [Suspect]
     Indication: OSTEOPOROSIS
     Dates: start: 20051101, end: 20060701
  2. FORTEO PEN (FORTEO PEN) [Concomitant]

REACTIONS (4)
  - CONTUSION [None]
  - EXCORIATION [None]
  - FALL [None]
  - PHARMACEUTICAL PRODUCT COMPLAINT [None]
